FAERS Safety Report 11192184 (Version 9)
Quarter: 2017Q2

REPORT INFORMATION
  Report Type: Report from Study
  Country: US (occurrence: US)
  Receive Date: 20150616
  Receipt Date: 20170619
  Transmission Date: 20170829
  Serious: Yes (Hospitalization, Other)
  Sender: FDA-Public Use
  Company Number: US-SA-2015SA045703

PATIENT
  Age: 26 Year
  Sex: Female
  Weight: 74.38 kg

DRUGS (6)
  1. LEMTRADA [Suspect]
     Active Substance: ALEMTUZUMAB
     Indication: MULTIPLE SCLEROSIS
     Route: 041
     Dates: start: 20150327, end: 20150327
  2. LEMTRADA [Suspect]
     Active Substance: ALEMTUZUMAB
     Indication: MULTIPLE SCLEROSIS
     Route: 041
     Dates: start: 20160413, end: 20160415
  3. CYCLOBENZAPRINE. [Concomitant]
     Active Substance: CYCLOBENZAPRINE
     Indication: MUSCLE RELAXANT THERAPY
  4. LEMTRADA [Suspect]
     Active Substance: ALEMTUZUMAB
     Indication: MULTIPLE SCLEROSIS
     Route: 041
     Dates: start: 20150324, end: 20150325
  5. FLUOXETINE [Concomitant]
     Active Substance: FLUOXETINE HYDROCHLORIDE
     Indication: AFFECTIVE DISORDER
  6. LEMTRADA [Suspect]
     Active Substance: ALEMTUZUMAB
     Indication: MULTIPLE SCLEROSIS
     Route: 041
     Dates: start: 20150330, end: 20150331

REACTIONS (23)
  - Contusion [Not Recovered/Not Resolved]
  - Labour induction [Recovered/Resolved]
  - Asthenia [Recovered/Resolved]
  - Protein urine present [Unknown]
  - Fear [Recovering/Resolving]
  - Paraesthesia [Unknown]
  - Blood urine present [Unknown]
  - Fatigue [Recovering/Resolving]
  - Loop electrosurgical excision procedure [Recovered/Resolved]
  - Balance disorder [Recovered/Resolved]
  - Nuclear magnetic resonance imaging abnormal [Unknown]
  - Peripheral swelling [Unknown]
  - Limb discomfort [Recovering/Resolving]
  - Feeling cold [Unknown]
  - Infusion related reaction [Recovering/Resolving]
  - Gait disturbance [Recovered/Resolved]
  - Monoplegia [Recovering/Resolving]
  - Neuralgia [Unknown]
  - Muscular weakness [Recovered/Resolved]
  - Pain in extremity [Not Recovered/Not Resolved]
  - Arthralgia [Recovered/Resolved]
  - Exposure during pregnancy [Unknown]
  - Mobility decreased [Recovering/Resolving]

NARRATIVE: CASE EVENT DATE: 2015
